FAERS Safety Report 21750067 (Version 2)
Quarter: 2023Q1

REPORT INFORMATION
  Report Type: Spontaneous
  Country: IN (occurrence: IN)
  Receive Date: 20221219
  Receipt Date: 20230103
  Transmission Date: 20230418
  Serious: Yes (Life-Threatening, Other)
  Sender: FDA-Public Use
  Company Number: IN-AMERICAN REGENT INC-2022003543

PATIENT
  Age: 31 Year
  Sex: Female
  Weight: 55 kg

DRUGS (4)
  1. FERINJECT [Suspect]
     Active Substance: FERRIC CARBOXYMALTOSE
     Indication: Iron deficiency anaemia
     Dosage: 1 GM DILUTED IN 100 ML OF NORMAL SALINE GIVEN ONCE ONLY DAILY
     Dates: start: 20220818, end: 20220818
  2. FERINJECT [Suspect]
     Active Substance: FERRIC CARBOXYMALTOSE
     Indication: Anaemia of pregnancy
  3. FERROUS FUMARATE [Concomitant]
     Active Substance: FERROUS FUMARATE
     Indication: Anaemia of pregnancy
     Dosage: 50 MILLIGRAM, BID
     Route: 048
     Dates: start: 20220526, end: 20220810
  4. FERROUS FUMARATE [Concomitant]
     Active Substance: FERROUS FUMARATE
     Indication: Iron deficiency anaemia

REACTIONS (2)
  - Maternal exposure during pregnancy [Unknown]
  - Anaphylactic reaction [Unknown]

NARRATIVE: CASE EVENT DATE: 20220818
